FAERS Safety Report 4598301-X (Version None)
Quarter: 2005Q1

REPORT INFORMATION
  Report Type: 
  Country: None (occurrence: None)
  Receive Date: 20050302
  Receipt Date: 20050302
  Transmission Date: 20050727
  Serious: Yes (Other)
  Sender: FDA-Public Use
  Company Number: None

PATIENT
  Age: 16 Year
  Sex: Female
  Weight: 55.7924 kg

DRUGS (1)
  1. LEXAPRO [Suspect]
     Dosage: 5 MG TO 10 MG
     Dates: start: 20050106

REACTIONS (2)
  - CONTUSION [None]
  - METRORRHAGIA [None]
